FAERS Safety Report 11394016 (Version 2)
Quarter: 2016Q2

REPORT INFORMATION
  Report Type: Report from Study
  Country: US (occurrence: US)
  Receive Date: 20150819
  Receipt Date: 20160520
  Transmission Date: 20160815
  Serious: Yes (Other)
  Sender: FDA-Public Use
  Company Number: US-AMGEN-USASL2015083033

PATIENT
  Age: 53 Year
  Sex: Male

DRUGS (3)
  1. ENBREL [Suspect]
     Active Substance: ETANERCEPT
     Indication: PSORIATIC ARTHROPATHY
  2. KLONOPIN [Concomitant]
     Active Substance: CLONAZEPAM
     Dosage: UNK
  3. ENBREL [Suspect]
     Active Substance: ETANERCEPT
     Indication: PSORIASIS
     Dosage: 50 MG, TWICE WEEKLY
     Route: 065

REACTIONS (10)
  - Psoriatic arthropathy [Not Recovered/Not Resolved]
  - Intervertebral disc disorder [Unknown]
  - Hypertension [Unknown]
  - Alopecia [Not Recovered/Not Resolved]
  - Rotator cuff syndrome [Not Recovered/Not Resolved]
  - Tremor [Unknown]
  - Psoriasis [Not Recovered/Not Resolved]
  - Anxiety [Unknown]
  - Dry mouth [Unknown]
  - Stress [Unknown]
